FAERS Safety Report 6140186-4 (Version None)
Quarter: 2009Q2

REPORT INFORMATION
  Report Type: 
  Country: None (occurrence: None)
  Receive Date: 20090401
  Receipt Date: 20090325
  Transmission Date: 20091009
  Serious: Yes (Hospitalization)
  Sender: FDA-Public Use
  Company Number: DE-SANOFI-SYNTHELABO-A01200901417

PATIENT
  Sex: Female
  Weight: 70 kg

DRUGS (7)
  1. OMEP [Suspect]
     Indication: MULTIPLE DRUG OVERDOSE
     Route: 048
     Dates: start: 20090209, end: 20090209
  2. METOHEXAL [Suspect]
     Indication: MULTIPLE DRUG OVERDOSE
     Route: 048
     Dates: start: 20090209, end: 20090209
  3. TOREM [Suspect]
     Indication: MULTIPLE DRUG OVERDOSE
     Route: 048
     Dates: start: 20090209, end: 20090209
  4. EUTHYROX [Suspect]
     Indication: MULTIPLE DRUG OVERDOSE
     Route: 048
     Dates: start: 20090209, end: 20090209
  5. DELIX [Suspect]
     Indication: MULTIPLE DRUG OVERDOSE
     Route: 048
     Dates: start: 20090209, end: 20090209
  6. METAMIZOLE [Suspect]
     Indication: MULTIPLE DRUG OVERDOSE
     Route: 048
     Dates: start: 20090209, end: 20090209
  7. CLOPIDOGREL [Suspect]
     Indication: MULTIPLE DRUG OVERDOSE
     Dosage: 7 TABLETS, THE WHOLE MEDICATION FOR THE WEEK -END
     Route: 048
     Dates: start: 20090209, end: 20090209

REACTIONS (4)
  - ATRIOVENTRICULAR BLOCK FIRST DEGREE [None]
  - BRADYCARDIA [None]
  - MULTIPLE DRUG OVERDOSE INTENTIONAL [None]
  - NAUSEA [None]
